FAERS Safety Report 23526376 (Version 6)
Quarter: 2024Q4

REPORT INFORMATION
  Report Type: Spontaneous
  Country: HN (occurrence: HN)
  Receive Date: 20240215
  Receipt Date: 20241010
  Transmission Date: 20250115
  Serious: No
  Sender: PFIZER
  Company Number: HN-PFIZER INC-PV202400010933

PATIENT
  Age: 11 Year
  Sex: Female

DRUGS (1)
  1. GENOTROPIN [Suspect]
     Active Substance: SOMATROPIN
     Dosage: 0.7 MG, DAILY (AT NIGHT)

REACTIONS (3)
  - Drug dose omission by device [Unknown]
  - Device information output issue [Unknown]
  - Device physical property issue [Unknown]

NARRATIVE: CASE EVENT DATE: 20240121
